FAERS Safety Report 20825977 (Version 1)
Quarter: 2022Q2

REPORT INFORMATION
  Report Type: Report from Study
  Country: DE (occurrence: DE)
  Receive Date: 20220513
  Receipt Date: 20220513
  Transmission Date: 20220721
  Serious: Yes (Hospitalization, Other)
  Sender: FDA-Public Use
  Company Number: DE-BRISTOL-MYERS SQUIBB COMPANY-2022-015267

PATIENT
  Age: 67 Year
  Sex: Male

DRUGS (1)
  1. ENASIDENIB [Suspect]
     Active Substance: ENASIDENIB
     Indication: Acute myeloid leukaemia
     Dosage: CYCLE NO: 6
     Route: 048
     Dates: start: 20220322, end: 20220329

REACTIONS (1)
  - Laryngitis fungal [Recovering/Resolving]

NARRATIVE: CASE EVENT DATE: 20220503
